FAERS Safety Report 7819924-8 (Version None)
Quarter: 2011Q4

REPORT INFORMATION
  Report Type: 
  Country: None (occurrence: None)
  Receive Date: 20111018
  Receipt Date: 20110405
  Transmission Date: 20120403
  Serious: No
  Sender: FDA-Public Use
  Company Number: US-ASTRAZENECA-2011SE19367

PATIENT
  Age: 78 Year
  Sex: Female
  Weight: 40.8 kg

DRUGS (5)
  1. COMBIVENT [Concomitant]
     Indication: CHRONIC OBSTRUCTIVE PULMONARY DISEASE
     Dosage: 103-18 MCG INHALE 2-4 PUFFS BY MOUTH EVERY SIX HOURS
     Route: 055
  2. CLONIDINE [Concomitant]
     Indication: ESSENTIAL HYPERTENSION
     Route: 048
  3. SYMBICORT [Suspect]
     Indication: CHRONIC OBSTRUCTIVE PULMONARY DISEASE
     Dosage: 160/4.5 MCG TWO PUFFS BY MOUTH TWICE A DAY
     Route: 055
  4. FOSAMAX [Concomitant]
     Route: 048
  5. LOVASTATIN [Concomitant]
     Indication: DYSLIPIDAEMIA
     Route: 048

REACTIONS (3)
  - POLLAKIURIA [None]
  - DYSPNOEA EXERTIONAL [None]
  - OEDEMA [None]
